FAERS Safety Report 5379561-4 (Version None)
Quarter: 2007Q3

REPORT INFORMATION
  Report Type: 
  Country: None (occurrence: None)
  Receive Date: 20070703
  Receipt Date: 20070618
  Transmission Date: 20080115
  Serious: Yes (Hospitalization)
  Sender: FDA-Public Use
  Company Number: ALK_0006_2006

PATIENT
  Sex: Female

DRUGS (10)
  1. VIVITROL [Suspect]
     Indication: ALCOHOLISM
     Dosage: (380 MG 1X/MONTH INTRAMUSCULAR)
     Route: 030
     Dates: start: 20060626
  2. PAXIL [Concomitant]
  3. PRINIVIL [Concomitant]
  4. FOLATE SODIUM [Concomitant]
  5. RHINOCORT [Concomitant]
  6. HORMONES NOS () [Concomitant]
  7. ASACOL [Concomitant]
  8. VALIUM [Concomitant]
  9. ZYRTEC [Concomitant]
  10. SINGULAIR /01362601/ [Concomitant]

REACTIONS (7)
  - ALCOHOL POISONING [None]
  - DIZZINESS [None]
  - DRUG INEFFECTIVE [None]
  - FATIGUE [None]
  - INJECTION SITE MASS [None]
  - INJECTION SITE PAIN [None]
  - SOMNOLENCE [None]
